FAERS Safety Report 9216697 (Version 3)
Quarter: 2013Q2

REPORT INFORMATION
  Report Type: Spontaneous
  Country: US (occurrence: US)
  Receive Date: 20130408
  Receipt Date: 20130603
  Transmission Date: 20140414
  Serious: Yes (Other)
  Sender: FDA-Public Use
  Company Number: US-PFIZER INC-2013108314

PATIENT
  Age: 34 Year
  Sex: Female
  Weight: 63 kg

DRUGS (2)
  1. PRISTIQ [Suspect]
     Indication: ANXIETY
     Dosage: UNK, 1X/DAY
     Dates: start: 201112, end: 201112
  2. PRISTIQ [Suspect]
     Indication: DEPRESSION

REACTIONS (25)
  - Palpitations [Unknown]
  - Dissociation [Unknown]
  - Disturbance in attention [Unknown]
  - Derealisation [Unknown]
  - Panic attack [Unknown]
  - Disorientation [Unknown]
  - Thinking abnormal [Unknown]
  - Activities of daily living impaired [Unknown]
  - Personality change [Unknown]
  - Paranoid personality disorder [Unknown]
  - Depression [Unknown]
  - Anxiety [Unknown]
  - Obsessive-compulsive disorder [Unknown]
  - Social avoidant behaviour [Unknown]
  - Influenza like illness [Unknown]
  - Vision blurred [Unknown]
  - Burning sensation [Unknown]
  - Tremor [Unknown]
  - Muscle spasms [Unknown]
  - Sensory disturbance [Unknown]
  - Fear [Unknown]
  - Fatigue [Unknown]
  - Dizziness [Unknown]
  - Insomnia [Unknown]
  - Nausea [Unknown]
